FAERS Safety Report 19966743 (Version 27)
Quarter: 2023Q4

REPORT INFORMATION
  Report Type: Report from Study
  Country: JP (occurrence: JP)
  Receive Date: 20211018
  Receipt Date: 20231108
  Transmission Date: 20240109
  Serious: Yes (Life-Threatening, Hospitalization, Other)
  Sender: FDA-Public Use
  Company Number: JP-TAKEDA-2021TJP105843

PATIENT
  Age: 37 Year
  Sex: Female

DRUGS (13)
  1. ICATIBANT [Suspect]
     Active Substance: ICATIBANT ACETATE
     Indication: Hereditary angioedema with normal C1 esterase inhibitor
     Dosage: 30 MILLIGRAM
     Route: 058
     Dates: start: 20201203
  2. ICATIBANT [Suspect]
     Active Substance: ICATIBANT ACETATE
     Indication: Hereditary angioedema with normal C1 esterase inhibitor
     Dosage: 30 MILLIGRAM
     Route: 058
     Dates: start: 20201203
  3. TAKHZYRO [Suspect]
     Active Substance: LANADELUMAB-FLYO
     Indication: Hereditary angioedema with normal C1 esterase inhibitor
     Dosage: 300 MILLIGRAM, QD
     Route: 058
     Dates: start: 20220715, end: 20220715
  4. TAKHZYRO [Suspect]
     Active Substance: LANADELUMAB-FLYO
     Dosage: 300 MILLIGRAM, QD
     Route: 058
     Dates: start: 20220729
  5. TAKHZYRO [Suspect]
     Active Substance: LANADELUMAB-FLYO
     Dosage: 300 MILLIGRAM, Q2WEEKS
     Route: 058
  6. TAKHZYRO [Suspect]
     Active Substance: LANADELUMAB-FLYO
     Dosage: 300 MILLIGRAM, Q4WEEKS
     Route: 058
  7. TAKHZYRO [Suspect]
     Active Substance: LANADELUMAB-FLYO
     Dosage: 300 MILLIGRAM, Q2WEEKS
     Route: 058
  8. MODERNA COVID-19 VACCINE [Suspect]
     Active Substance: ELASOMERAN
     Indication: COVID-19 immunisation
     Dosage: 1 DOSAGE FORM, FIRST DOSE
     Route: 030
  9. ORLADEYO [Suspect]
     Active Substance: BEROTRALSTAT HYDROCHLORIDE
     Indication: Product used for unknown indication
     Route: 048
  10. TRANEXAMIC ACID [Concomitant]
     Active Substance: TRANEXAMIC ACID
     Indication: Product used for unknown indication
     Route: 048
  11. BERINERT P [Concomitant]
     Active Substance: HUMAN C1-ESTERASE INHIBITOR
     Indication: Hereditary angioedema with normal C1 esterase inhibitor
  12. LOXOPROFEN SODIUM [Concomitant]
     Active Substance: LOXOPROFEN SODIUM
     Dosage: UNK
     Route: 065
  13. REBAMIPIDE [Concomitant]
     Active Substance: REBAMIPIDE
     Dosage: UNK
     Route: 065

REACTIONS (47)
  - Respiratory failure [Unknown]
  - Hereditary angioedema [Recovering/Resolving]
  - Hereditary angioedema [Recovering/Resolving]
  - Gastric ulcer [Unknown]
  - Toothache [Unknown]
  - Bradycardia [Unknown]
  - Hereditary angioedema [Recovering/Resolving]
  - Dizziness [Unknown]
  - Joint dislocation [Unknown]
  - Nausea [Unknown]
  - Vomiting [Unknown]
  - Diarrhoea [Unknown]
  - Dehydration [Unknown]
  - Hereditary angioedema [Unknown]
  - Dysmenorrhoea [Unknown]
  - Drug ineffective [Unknown]
  - Product use complaint [Unknown]
  - Erythema annulare [Unknown]
  - Dysuria [Unknown]
  - Injection site pain [Unknown]
  - Swelling of eyelid [Unknown]
  - Immunisation reaction [Unknown]
  - Vaccination site swelling [Unknown]
  - Physical deconditioning [Unknown]
  - Administration site pruritus [Unknown]
  - Administration site rash [Unknown]
  - Administration site swelling [Unknown]
  - Administration site pain [Unknown]
  - Diarrhoea [Unknown]
  - Abdominal pain [Unknown]
  - Malaise [Unknown]
  - Asthenia [Unknown]
  - Hereditary angioedema [Unknown]
  - Dizziness [Unknown]
  - Urticaria [Recovering/Resolving]
  - Pyrexia [Unknown]
  - Malaise [Unknown]
  - Oxygen saturation decreased [Unknown]
  - Dizziness [Unknown]
  - Impaired healing [Unknown]
  - Administration site pruritus [Unknown]
  - Administration site urticaria [Unknown]
  - Intermenstrual bleeding [Unknown]
  - Injection site pain [Unknown]
  - Injection site pain [Unknown]
  - Product use complaint [Unknown]
  - Physical deconditioning [Recovered/Resolved]

NARRATIVE: CASE EVENT DATE: 20220716
